FAERS Safety Report 19850294 (Version 2)
Quarter: 2022Q4

REPORT INFORMATION
  Report Type: Spontaneous
  Country: JP (occurrence: JP)
  Receive Date: 20210917
  Receipt Date: 20221129
  Transmission Date: 20230113
  Serious: Yes (Hospitalization, Other)
  Sender: FDA-Public Use
  Company Number: JP-MSD-M2021-21672

PATIENT
  Age: 66 Year
  Sex: Female

DRUGS (1)
  1. KEYTRUDA [Suspect]
     Active Substance: PEMBROLIZUMAB
     Indication: Lung adenocarcinoma
     Dosage: 200 MILLIGRAM, Q3W
     Route: 041
     Dates: start: 201808, end: 202105

REACTIONS (3)
  - Immune-mediated pancreatitis [Unknown]
  - Immune-mediated hepatitis [Unknown]
  - Cholangitis sclerosing [Unknown]

NARRATIVE: CASE EVENT DATE: 20210101
